FAERS Safety Report 5837309-0 (Version None)
Quarter: 2008Q3

REPORT INFORMATION
  Report Type: 
  Country: None (occurrence: None)
  Receive Date: 20080807
  Receipt Date: 20080731
  Transmission Date: 20090109
  Serious: Yes (Hospitalization, Other)
  Sender: FDA-Public Use
  Company Number: JP-PFIZER INC-2008047759

PATIENT
  Sex: Male
  Weight: 54 kg

DRUGS (5)
  1. CABASER [Suspect]
     Indication: PARKINSON'S DISEASE
     Dosage: TEXT:2-3 MG
     Route: 048
  2. PERMAX [Suspect]
     Dosage: DAILY DOSE:750MG
     Route: 048
     Dates: start: 19960101, end: 20060101
  3. SYMMETREL [Concomitant]
     Route: 048
  4. ARTANE [Concomitant]
     Route: 048
  5. SIFROL [Concomitant]
     Indication: PARKINSON'S DISEASE
     Route: 048

REACTIONS (2)
  - BASEDOW'S DISEASE [None]
  - MITRAL VALVE INCOMPETENCE [None]
